FAERS Safety Report 7179347-4 (Version None)
Quarter: 2010Q4

REPORT INFORMATION
  Report Type: 
  Country: None (occurrence: None)
  Receive Date: 20101217
  Receipt Date: 20101217
  Transmission Date: 20110411
  Serious: Yes (Hospitalization)
  Sender: FDA-Public Use
  Company Number: None

PATIENT
  Age: 28 Year
  Sex: Female

DRUGS (1)
  1. PANTOPRAZOLE [Suspect]
     Indication: VOMITING
     Dosage: 40MG Q6H IV BOLUS
     Route: 040
     Dates: start: 20101120, end: 20101122

REACTIONS (1)
  - ANGIOEDEMA [None]
